FAERS Safety Report 17325993 (Version 3)
Quarter: 2020Q1

REPORT INFORMATION
  Report Type: Spontaneous
  Country: FR (occurrence: FR)
  Receive Date: 20200127
  Receipt Date: 20200214
  Transmission Date: 20200409
  Serious: Yes (Hospitalization, Other)
  Sender: FDA-Public Use
  Company Number: FR-MYLANLABS-2020M1007879

PATIENT
  Age: 60 Year
  Sex: Male

DRUGS (12)
  1. KARDEGIC [Suspect]
     Active Substance: ASPIRIN DL-LYSINE
     Indication: MYOCARDIAL INFARCTION
     Dosage: 1 DOSING UNIT AT LUNCH
     Route: 048
     Dates: start: 2019
  2. COLCHICINE. [Suspect]
     Active Substance: COLCHICINE
     Indication: MYOCARDIAL INFARCTION
     Dosage: 1 TABLET IN THE EVENING
     Route: 048
     Dates: start: 2019
  3. BISOPROLOL [Interacting]
     Active Substance: BISOPROLOL
     Indication: CARDIAC FAILURE
     Dosage: 1.25 MILLIGRAM, QD
     Route: 048
     Dates: start: 2019, end: 2019
  4. ATORVASTATIN [Interacting]
     Active Substance: ATORVASTATIN
     Indication: MYOCARDIAL INFARCTION
     Dosage: 80 MILLIGRAM, QD
     Route: 048
     Dates: start: 2019
  5. CARTEOL                            /00583802/ [Suspect]
     Active Substance: CARTEOLOL
     Dosage: 2 GTT DROPS, QD
     Route: 047
     Dates: start: 2019
  6. EPLERENONE. [Interacting]
     Active Substance: EPLERENONE
     Indication: MYOCARDIAL INFARCTION
     Dosage: 1 DOSING UNIT AT LUNCH
     Route: 048
     Dates: start: 2019
  7. TAREG [Suspect]
     Active Substance: VALSARTAN
     Indication: MYOCARDIAL INFARCTION
     Dosage: 1 TABLET IN THE EVENING
     Route: 048
     Dates: start: 2019
  8. FUROSEMIDE. [Suspect]
     Active Substance: FUROSEMIDE
     Indication: MYOCARDIAL INFARCTION
     Dosage: 40 MILLIGRAM, QD, 1 DOSING UNIT IN THE MORNING
     Route: 048
     Dates: start: 2019
  9. CARTEOL                            /00583802/ [Suspect]
     Active Substance: CARTEOLOL
     Indication: GLAUCOMA
     Dosage: STARTED APPROXIMATELY 5 YEARS AGO (REPORTED AS SEVERAL YEARS); 1 DROP PER DAY IN EACH EYE
     Route: 047
     Dates: start: 2019
  10. CARTEOL                            /00583802/ [Suspect]
     Active Substance: CARTEOLOL
     Dosage: 2 GTT DROPS, QD
     Route: 047
     Dates: start: 2019, end: 20191120
  11. BISOPROLOL [Interacting]
     Active Substance: BISOPROLOL
     Indication: MYOCARDIAL INFARCTION
  12. BRILIQUE [Suspect]
     Active Substance: TICAGRELOR
     Indication: MYOCARDIAL INFARCTION
     Dosage: 1 DOSING UNIT
     Route: 048
     Dates: start: 2019

REACTIONS (10)
  - Visual impairment [Not Recovered/Not Resolved]
  - Cataract [Not Recovered/Not Resolved]
  - Hypotension [Unknown]
  - Labelled drug-drug interaction medication error [Unknown]
  - Labelled drug-disease interaction medication error [Unknown]
  - Cardiac failure [Unknown]
  - Myocardial infarction [Unknown]
  - Vertigo [Not Recovered/Not Resolved]
  - Weight decreased [Recovered/Resolved]
  - Contraindicated product administered [Unknown]

NARRATIVE: CASE EVENT DATE: 2019
